FAERS Safety Report 5026805-4 (Version None)
Quarter: 2006Q2

REPORT INFORMATION
  Report Type: 
  Country: None (occurrence: None)
  Receive Date: 20060608
  Receipt Date: 20060524
  Transmission Date: 20061013
  Serious: Yes (Hospitalization)
  Sender: FDA-Public Use
  Company Number: 225302

PATIENT
  Age: 31 Year
  Sex: Female

DRUGS (5)
  1. RAPTIVA [Suspect]
     Indication: PSORIASIS
     Dosage: SUBCUTANEOUS
     Route: 058
     Dates: start: 20060110, end: 20060501
  2. TRIONETTA (ETHINYL ESTRADIOL, LEVONOGESTREL) [Concomitant]
  3. FLUOXETINE HCL [Concomitant]
  4. ZYRTEC [Concomitant]
  5. EUGYNON (ETHINYL ESTRADIOL, LEVONORGESTREL OR NORGESTREL) [Concomitant]

REACTIONS (2)
  - ACUTE MYOCARDIAL INFARCTION [None]
  - EJECTION FRACTION DECREASED [None]
